FAERS Safety Report 11829070 (Version 2)
Quarter: 2016Q3

REPORT INFORMATION
  Report Type: Spontaneous
  Country: AU (occurrence: AU)
  Receive Date: 20151211
  Receipt Date: 20160728
  Transmission Date: 20161109
  Serious: Yes (Hospitalization)
  Sender: FDA-Public Use
  Company Number: AU-B.I. PHARMACEUTICALS,INC./RIDGEFIELD-2015-BI-68207AU

PATIENT
  Age: 77 Year
  Sex: Male

DRUGS (3)
  1. MOXIFLOXACIN. [Concomitant]
     Active Substance: MOXIFLOXACIN
     Indication: PRODUCT USED FOR UNKNOWN INDICATION
     Dosage: 400 MG
     Route: 065
     Dates: start: 20151127, end: 20151205
  2. SPIRIVA [Suspect]
     Active Substance: TIOTROPIUM BROMIDE MONOHYDRATE
     Indication: CHRONIC OBSTRUCTIVE PULMONARY DISEASE
     Dosage: 18 MCG
     Route: 065
     Dates: end: 20151205
  3. SERETIDE [Concomitant]
     Active Substance: FLUTICASONE PROPIONATE\SALMETEROL XINAFOATE
     Indication: PRODUCT USED FOR UNKNOWN INDICATION
     Dosage: 2 PUF
     Route: 065

REACTIONS (9)
  - Chronic obstructive pulmonary disease [Recovered/Resolved]
  - Tongue discolouration [Unknown]
  - Tongue discolouration [Recovered/Resolved]
  - Dry mouth [Recovered/Resolved]
  - Lung disorder [Unknown]
  - Glossodynia [Unknown]
  - Tremor [Unknown]
  - Glossodynia [Recovered/Resolved]
  - Pruritus [Unknown]

NARRATIVE: CASE EVENT DATE: 20151130
